FAERS Safety Report 7989629-1 (Version None)
Quarter: 2011Q4

REPORT INFORMATION
  Report Type: 
  Country: None (occurrence: None)
  Receive Date: 20111219
  Receipt Date: 20111213
  Transmission Date: 20120403
  Serious: Yes (Hospitalization, Other)
  Sender: FDA-Public Use
  Company Number: US-JNJFOC-20110511073

PATIENT
  Sex: Female

DRUGS (8)
  1. LEVAQUIN [Suspect]
     Indication: CELLULITIS
     Route: 048
  2. CLIMARA [Concomitant]
     Indication: HOT FLUSH
     Route: 065
  3. LEVAQUIN [Suspect]
     Indication: LOCALISED INFECTION
     Route: 048
     Dates: start: 20050101
  4. FOLIC ACID [Concomitant]
     Indication: SYSTEMIC LUPUS ERYTHEMATOSUS
     Route: 065
  5. TRIAMTERENE [Concomitant]
     Indication: DIURETIC THERAPY
     Route: 065
  6. CIPROFLOXACIN [Suspect]
     Indication: INFECTION
     Route: 065
  7. METHYLPREDNISOLONE [Suspect]
     Indication: INFLAMMATION
     Route: 048
  8. NIFEDIPINE [Concomitant]
     Indication: HYPERTENSION
     Route: 065

REACTIONS (8)
  - TENDONITIS [None]
  - TENDON RUPTURE [None]
  - PLANTAR FASCIITIS [None]
  - JOINT DISLOCATION [None]
  - ROTATOR CUFF SYNDROME [None]
  - LIGAMENT INJURY [None]
  - INFECTION [None]
  - INFECTIVE TENOSYNOVITIS [None]
